FAERS Safety Report 17298730 (Version 1)
Quarter: 2020Q1

REPORT INFORMATION
  Report Type: Spontaneous
  Country: US (occurrence: US)
  Receive Date: 20200121
  Receipt Date: 20200121
  Transmission Date: 20200409
  Serious: Yes (Other)
  Sender: FDA-Public Use
  Company Number: None

PATIENT
  Age: 52 Year
  Sex: Female
  Weight: 148.05 kg

DRUGS (2)
  1. LATANOPROST 0.005 EYE DRP [Suspect]
     Active Substance: LATANOPROST
     Indication: POST PROCEDURAL COMPLICATION
     Dosage: ?          QUANTITY:1 DROP(S);?
     Route: 047
     Dates: start: 20190521, end: 20200121
  2. LATANOPROST 0.005 EYE DRP [Suspect]
     Active Substance: LATANOPROST
     Indication: INTRAOCULAR PRESSURE INCREASED
     Dosage: ?          QUANTITY:1 DROP(S);?
     Route: 047
     Dates: start: 20190521, end: 20200121

REACTIONS (2)
  - Ureterolithiasis [None]
  - Nephrolithiasis [None]

NARRATIVE: CASE EVENT DATE: 20200114
